FAERS Safety Report 6403757-3 (Version None)
Quarter: 2009Q4

REPORT INFORMATION
  Report Type: 
  Country: None (occurrence: None)
  Receive Date: 20091016
  Receipt Date: 20091006
  Transmission Date: 20100525
  Serious: Yes (Hospitalization)
  Sender: FDA-Public Use
  Company Number: DE-WYE-H11588409

PATIENT
  Sex: Male

DRUGS (2)
  1. AMIODARONE HYDROCHLORIDE [Suspect]
     Indication: ATRIAL FIBRILLATION
     Route: 048
     Dates: start: 20090701
  2. CLEXANE [Concomitant]
     Indication: PROPHYLAXIS
     Route: 058

REACTIONS (2)
  - EPIDIDYMITIS [None]
  - ESCHERICHIA INFECTION [None]
